FAERS Safety Report 9939452 (Version 1)
Quarter: 2014Q1

REPORT INFORMATION
  Report Type: Report from Study
  Country: US (occurrence: US)
  Receive Date: 20140303
  Receipt Date: 20140303
  Transmission Date: 20141002
  Serious: No
  Sender: FDA-Public Use
  Company Number: US-ABBVIE-13P-163-1035676-00

PATIENT
  Age: 65 Year
  Sex: Male

DRUGS (4)
  1. HUMIRA [Suspect]
     Indication: COLITIS ULCERATIVE
     Dates: start: 20130103
  2. INSULIN [Concomitant]
     Indication: DIABETES MELLITUS
  3. PREDNISONE [Concomitant]
     Indication: ASTHMA
  4. UNKNOWN MEDICATIONS [Concomitant]
     Indication: COLITIS

REACTIONS (2)
  - Nasopharyngitis [Not Recovered/Not Resolved]
  - Diarrhoea [Not Recovered/Not Resolved]
